FAERS Safety Report 7530749-3 (Version None)
Quarter: 2011Q2

REPORT INFORMATION
  Report Type: 
  Country: None (occurrence: None)
  Receive Date: 20110607
  Receipt Date: 20110601
  Transmission Date: 20111010
  Serious: Yes (Hospitalization)
  Sender: FDA-Public Use
  Company Number: JP-GILEAD-E2B_00000465

PATIENT
  Sex: Female

DRUGS (6)
  1. HEPSERA [Suspect]
     Indication: HEPATIC CIRRHOSIS
     Dosage: 10MG PER DAY
     Route: 048
     Dates: start: 20050302, end: 20090804
  2. PURSENNID [Concomitant]
     Indication: CONSTIPATION
     Route: 048
     Dates: start: 20051017
  3. PROGRAF [Suspect]
     Indication: IMMUNOSUPPRESSION
     Dosage: 1MG PER DAY
     Route: 048
     Dates: start: 20030301
  4. ADALAT [Concomitant]
     Indication: PRODUCT USED FOR UNKNOWN INDICATION
     Dosage: 10MG PER DAY
     Route: 048
     Dates: start: 20060614
  5. URSO 250 [Concomitant]
     Dosage: 200MG THREE TIMES PER DAY
     Route: 048
     Dates: start: 20030416
  6. LAMIVUDINE(PEPFAR) [Suspect]
     Indication: HEPATIC CIRRHOSIS
     Dosage: 100MG PER DAY
     Route: 048
     Dates: end: 20090804

REACTIONS (18)
  - BACK PAIN [None]
  - BLOOD ALKALINE PHOSPHATASE INCREASED [None]
  - HYPOPHOSPHATAEMIA [None]
  - BLOOD SODIUM INCREASED [None]
  - AMINOACIDURIA [None]
  - BONE PAIN [None]
  - RENAL GLYCOSURIA [None]
  - ANION GAP NORMAL [None]
  - BLOOD PHOSPHORUS DECREASED [None]
  - MUSCULOSKELETAL PAIN [None]
  - ARTHRALGIA [None]
  - BLOOD CHLORIDE INCREASED [None]
  - URINE URIC ACID INCREASED [None]
  - BLOOD GLUCOSE INCREASED [None]
  - METABOLIC ACIDOSIS [None]
  - BLOOD CREATININE INCREASED [None]
  - BLOOD URIC ACID DECREASED [None]
  - FANCONI SYNDROME ACQUIRED [None]
